FAERS Safety Report 7423839-7 (Version None)
Quarter: 2011Q2

REPORT INFORMATION
  Report Type: 
  Country: None (occurrence: None)
  Receive Date: 20110419
  Receipt Date: 20110413
  Transmission Date: 20111010
  Serious: Yes (Hospitalization)
  Sender: FDA-Public Use
  Company Number: PHHY2011US31719

PATIENT
  Age: 76 Year
  Sex: Female

DRUGS (4)
  1. BACTRIM [Concomitant]
     Indication: PNEUMONIA
  2. PREDNISONE [Concomitant]
     Indication: PNEUMONIA
  3. TOBI [Suspect]
     Dosage: 300 MG, DAILY VIA NEBULIZER FOR 28 DAYS EVERY OTHER MONTH
  4. CEFEPIME [Concomitant]
     Indication: PNEUMONIA

REACTIONS (2)
  - UPPER RESPIRATORY TRACT INFECTION [None]
  - PNEUMONIA [None]
